FAERS Safety Report 17426797 (Version 1)
Quarter: 2020Q1

REPORT INFORMATION
  Report Type: Spontaneous
  Country: US (occurrence: US)
  Receive Date: 20200218
  Receipt Date: 20200218
  Transmission Date: 20200409
  Serious: Yes (Other)
  Sender: FDA-Public Use
  Company Number: US-ROCHE-2547647

PATIENT
  Age: 41 Year
  Sex: Female

DRUGS (9)
  1. ADRIAMYCIN [Concomitant]
     Active Substance: DOXORUBICIN HYDROCHLORIDE
  2. XELODA [Suspect]
     Active Substance: CAPECITABINE
     Indication: BREAST CANCER METASTATIC
     Route: 048
  3. ERIBULIN [Concomitant]
     Active Substance: ERIBULIN
  4. GEMCITABINE. [Concomitant]
     Active Substance: GEMCITABINE
  5. CYTOXAN [Concomitant]
     Active Substance: CYCLOPHOSPHAMIDE
  6. CARBOPLATIN. [Concomitant]
     Active Substance: CARBOPLATIN
  7. CISPLATIN. [Concomitant]
     Active Substance: CISPLATIN
  8. TAXOL [Concomitant]
     Active Substance: PACLITAXEL
  9. PEMBROLIZUMAB. [Concomitant]
     Active Substance: PEMBROLIZUMAB

REACTIONS (1)
  - Metastases to central nervous system [Unknown]
